FAERS Safety Report 12977279 (Version 1)
Quarter: 2016Q4

REPORT INFORMATION
  Report Type: Spontaneous
  Country: US (occurrence: US)
  Receive Date: 20161128
  Receipt Date: 20161128
  Transmission Date: 20170207
  Serious: Yes (Hospitalization, Other)
  Sender: FDA-Public Use
  Company Number: US-CLINIGEN GROUP PLC/ CLINIGEN HEALTHCARE LTD-E2B_00000548

PATIENT
  Age: 51 Year
  Sex: Female
  Weight: 51.3 kg

DRUGS (14)
  1. CISPLATIN. [Concomitant]
     Active Substance: CISPLATIN
     Dosage: UNK UNK
     Route: 065
  2. PROVIGIL [Concomitant]
     Active Substance: MODAFINIL
     Dosage: UNK UNK
     Route: 065
  3. ETHYOL [Suspect]
     Active Substance: AMIFOSTINE
     Indication: RADIOTHERAPY
     Dosage: UNK
     Route: 058
     Dates: start: 20060314, end: 20060403
  4. MARINOL [Concomitant]
     Active Substance: DRONABINOL
     Route: 065
  5. SENOKOT [Concomitant]
     Active Substance: SENNOSIDES
     Dosage: UNK UNK
     Route: 065
  6. MANNITOL. [Concomitant]
     Active Substance: MANNITOL
     Dosage: UNK UNK
     Route: 065
  7. HYOSCYAMINE. [Concomitant]
     Active Substance: HYOSCYAMINE
     Dosage: UNK
     Route: 065
  8. PROTONIX [Concomitant]
     Active Substance: PANTOPRAZOLE SODIUM
     Dosage: UNK
     Route: 065
  9. ETHYOL [Suspect]
     Active Substance: AMIFOSTINE
     Indication: CHEMOTHERAPY
     Dosage: UNK
     Route: 058
     Dates: start: 20060314, end: 20060403
  10. ETHYOL [Suspect]
     Active Substance: AMIFOSTINE
     Indication: CHEMOTHERAPY
     Dosage: UNK UNK
  11. MEGACE [Concomitant]
     Active Substance: MEGESTROL ACETATE
     Dosage: UNK UNK
     Route: 065
  12. RADIATION THERAPY [Concomitant]
     Active Substance: RADIATION THERAPY
     Dosage: UNK UNK
     Route: 065
     Dates: start: 20060320, end: 20060418
  13. ETHYOL [Suspect]
     Active Substance: AMIFOSTINE
     Indication: RADIOTHERAPY
     Dosage: UNK UNK
  14. VP-16 [Concomitant]
     Active Substance: ETOPOSIDE
     Dosage: UNK UNK
     Route: 065

REACTIONS (15)
  - Feeling cold [Recovered/Resolved]
  - Carotid artery occlusion [Unknown]
  - Injection site erythema [Recovered/Resolved]
  - Injection site rash [Recovered/Resolved]
  - Injection site pruritus [Recovered/Resolved]
  - Headache [Recovered/Resolved]
  - Tachycardia [Recovered/Resolved]
  - Cerebrovascular accident [Recovered/Resolved with Sequelae]
  - Hypoaesthesia oral [Recovered/Resolved]
  - Pyrexia [Recovered/Resolved]
  - Hypotension [Recovered/Resolved]
  - Back pain [Recovered/Resolved]
  - Nausea [Recovered/Resolved]
  - Tremor [Recovered/Resolved]
  - Injection site warmth [Recovered/Resolved]

NARRATIVE: CASE EVENT DATE: 20060323
